FAERS Safety Report 8025668-2 (Version None)
Quarter: 2012Q1

REPORT INFORMATION
  Report Type: 
  Country: None (occurrence: None)
  Receive Date: 20120105
  Receipt Date: 20120103
  Transmission Date: 20120608
  Serious: Yes (Disabling)
  Sender: FDA-Public Use
  Company Number: US-BAYER-2012-000909

PATIENT
  Sex: Female

DRUGS (1)
  1. AVELOX [Suspect]
     Indication: INFECTION
     Dosage: 400 MG, ONCE
     Route: 048
     Dates: start: 20111201, end: 20111201

REACTIONS (5)
  - DIARRHOEA [None]
  - PRURITUS GENERALISED [None]
  - GENERALISED ERYTHEMA [None]
  - DISCOMFORT [None]
  - HYPERSENSITIVITY [None]
